FAERS Safety Report 21189971 (Version 4)
Quarter: 2022Q3

REPORT INFORMATION
  Report Type: Spontaneous
  Country: CO (occurrence: CO)
  Receive Date: 20220809
  Receipt Date: 20220906
  Transmission Date: 20221027
  Serious: Yes (Other)
  Sender: FDA-Public Use
  Company Number: CO-GLAXOSMITHKLINE-CO2022AMR115747

PATIENT

DRUGS (3)
  1. MEPOLIZUMAB [Suspect]
     Active Substance: MEPOLIZUMAB
     Indication: Asthma
     Dosage: 100MG, Z,  28 DAYS
     Dates: start: 20190913, end: 20220829
  2. IPRATROPIUM BROMIDE [Concomitant]
     Active Substance: IPRATROPIUM BROMIDE
     Indication: Product used for unknown indication
     Dosage: UNK
  3. SPIRIVA RESPIMAT [Concomitant]
     Active Substance: TIOTROPIUM BROMIDE
     Indication: Product used for unknown indication
     Dosage: UNK

REACTIONS (6)
  - Asthmatic crisis [Recovered/Resolved]
  - Emotional disorder [Recovered/Resolved]
  - Depressed mood [Unknown]
  - Respiratory tract infection [Recovered/Resolved]
  - Pyrexia [Recovered/Resolved]
  - Product use in unapproved indication [Unknown]

NARRATIVE: CASE EVENT DATE: 20220715
